FAERS Safety Report 4686578-1 (Version None)
Quarter: 2005Q2

REPORT INFORMATION
  Report Type: 
  Country: None (occurrence: None)
  Receive Date: 20050607
  Receipt Date: 20050525
  Transmission Date: 20051028
  Serious: Yes (Hospitalization, Other)
  Sender: FDA-Public Use
  Company Number: US_0505118081

PATIENT
  Age: 77 Year
  Sex: Female
  Weight: 91 kg

DRUGS (1)
  1. HUMULIN 70/30 [Suspect]
     Indication: DIABETES MELLITUS
     Dosage: 50 U/2 DAY
     Dates: start: 20000101

REACTIONS (3)
  - BODY TEMPERATURE INCREASED [None]
  - HAEMATOTOXICITY [None]
  - NEPHROLITHIASIS [None]
